FAERS Safety Report 15395509 (Version 1)
Quarter: 2018Q3

REPORT INFORMATION
  Report Type: Spontaneous
  Country: CH (occurrence: CH)
  Receive Date: 20180918
  Receipt Date: 20180918
  Transmission Date: 20181010
  Serious: Yes (Hospitalization)
  Sender: FDA-Public Use
  Company Number: CH-JNJFOC-20180905640

PATIENT
  Age: 42 Year
  Sex: Female

DRUGS (5)
  1. SERESTA [Concomitant]
     Active Substance: OXAZEPAM
     Route: 048
  2. TRITTICO [Concomitant]
     Active Substance: TRAZODONE HYDROCHLORIDE
     Route: 048
  3. FLOXYFRAL M BRUCHRILLE [Concomitant]
     Active Substance: FLUVOXAMINE MALEATE
     Route: 048
  4. SERALIN MEPHA [Concomitant]
     Active Substance: SERTRALINE HYDROCHLORIDE
     Route: 048
  5. HALDOL [Suspect]
     Active Substance: HALOPERIDOL
     Indication: PRODUCT USED FOR UNKNOWN INDICATION
     Route: 048
     Dates: start: 20180822, end: 20180824

REACTIONS (5)
  - Hypersensitivity [Recovered/Resolved]
  - Dysphonia [Recovered/Resolved]
  - Respiratory disorder [Recovered/Resolved]
  - Angioedema [Recovered/Resolved]
  - Dyskinesia [Recovered/Resolved]

NARRATIVE: CASE EVENT DATE: 20180824
